FAERS Safety Report 10098524 (Version 1)
Quarter: 2014Q2

REPORT INFORMATION
  Report Type: Spontaneous
  Country: US (occurrence: None)
  Receive Date: 20140422
  Receipt Date: 20140422
  Transmission Date: 20141212
  Serious: Yes (Hospitalization)
  Sender: FDA-Public Use
  Company Number: None

PATIENT
  Age: 33 Year
  Sex: Female
  Weight: 59.42 kg

DRUGS (6)
  1. ISONIAZID [Suspect]
     Indication: ANTIBIOTIC PROPHYLAXIS
     Dosage: 3 TABLET, QD, ORAL
     Route: 048
     Dates: start: 20140130, end: 20140312
  2. VITAMIN B6 [Concomitant]
  3. VITAMIN A [Concomitant]
  4. VITAMIN B [Concomitant]
  5. VITAMIN C [Concomitant]
  6. FISH OIL [Concomitant]

REACTIONS (5)
  - Ocular hyperaemia [None]
  - Dizziness [None]
  - Syncope [None]
  - Asthenia [None]
  - Nausea [None]
